FAERS Safety Report 8389502-3 (Version None)
Quarter: 2012Q2

REPORT INFORMATION
  Report Type: 
  Country: None (occurrence: None)
  Receive Date: 20120528
  Receipt Date: 20120510
  Transmission Date: 20120825
  Serious: No
  Sender: FDA-Public Use
  Company Number: US-BAYER-2012-047001

PATIENT
  Age: 26 Year
  Sex: Female
  Weight: 54 kg

DRUGS (1)
  1. NAPROXEN SODIUM [Suspect]
     Indication: TOOTHACHE
     Dosage: 2 DF, BID
     Dates: start: 20120507, end: 20120507

REACTIONS (1)
  - TOOTHACHE [None]
